FAERS Safety Report 12746686 (Version 1)
Quarter: 2016Q3

REPORT INFORMATION
  Report Type: Spontaneous
  Country: US (occurrence: US)
  Receive Date: 20160915
  Receipt Date: 20160915
  Transmission Date: 20161109
  Serious: Yes (Hospitalization, Other)
  Sender: FDA-Public Use
  Company Number: US-LUNDBECK-DKLU2019014

PATIENT
  Age: 4 Year
  Sex: Male

DRUGS (14)
  1. ONFI [Suspect]
     Active Substance: CLOBAZAM
     Indication: EPILEPSY
     Route: 065
     Dates: start: 20160411
  2. ONFI [Suspect]
     Active Substance: CLOBAZAM
     Route: 065
  3. BANZEL [Concomitant]
     Active Substance: RUFINAMIDE
     Route: 065
  4. BANZEL [Concomitant]
     Active Substance: RUFINAMIDE
     Route: 065
  5. ALBUTEROL. [Concomitant]
     Active Substance: ALBUTEROL
     Indication: PRODUCT USED FOR UNKNOWN INDICATION
     Route: 065
  6. TOPAMAX [Concomitant]
     Active Substance: TOPIRAMATE
     Indication: PRODUCT USED FOR UNKNOWN INDICATION
     Route: 065
  7. BANZEL [Concomitant]
     Active Substance: RUFINAMIDE
     Indication: PRODUCT USED FOR UNKNOWN INDICATION
     Route: 065
     Dates: start: 20160411
  8. KEPPRA [Concomitant]
     Active Substance: LEVETIRACETAM
     Indication: PRODUCT USED FOR UNKNOWN INDICATION
     Route: 065
  9. MIRTAZAPINE. [Concomitant]
     Active Substance: MIRTAZAPINE
     Indication: PRODUCT USED FOR UNKNOWN INDICATION
     Route: 065
  10. ONFI [Suspect]
     Active Substance: CLOBAZAM
     Indication: ANGELMAN^S SYNDROME
     Route: 065
     Dates: start: 20160411
  11. CLONAZEPAM. [Concomitant]
     Active Substance: CLONAZEPAM
     Indication: PRODUCT USED FOR UNKNOWN INDICATION
     Route: 065
  12. FLO-VENT [Concomitant]
     Indication: PRODUCT USED FOR UNKNOWN INDICATION
     Route: 065
  13. ONFI [Suspect]
     Active Substance: CLOBAZAM
     Route: 065
  14. BENADRYL [Concomitant]
     Active Substance: DIPHENHYDRAMINE HYDROCHLORIDE
     Indication: PRODUCT USED FOR UNKNOWN INDICATION
     Route: 065

REACTIONS (10)
  - Bronchiolitis [Unknown]
  - Developmental regression [Unknown]
  - Seizure [Unknown]
  - Ataxia [Unknown]
  - Epilepsy [Unknown]
  - Decreased activity [Unknown]
  - Mobility decreased [Unknown]
  - Somnolence [Unknown]
  - Musculoskeletal stiffness [Unknown]
  - Hypophagia [Unknown]

NARRATIVE: CASE EVENT DATE: 20160727
